FAERS Safety Report 7267511-5 (Version None)
Quarter: 2011Q1

REPORT INFORMATION
  Report Type: 
  Country: None (occurrence: None)
  Receive Date: 20110201
  Receipt Date: 20110127
  Transmission Date: 20110831
  Serious: Yes (Death)
  Sender: FDA-Public Use
  Company Number: NO-SANOFI-AVENTIS-2011SA005632

PATIENT

DRUGS (2)
  1. RITONAVIR [Suspect]
     Indication: HIV INFECTION
  2. TAXOTERE [Suspect]
     Route: 042

REACTIONS (1)
  - DRUG INTERACTION [None]
